FAERS Safety Report 8373585 (Version 2)
Quarter: 2013Q1

REPORT INFORMATION
  Report Type: Report from Study
  Country: US (occurrence: US)
  Receive Date: 20120128
  Receipt Date: 20130129
  Transmission Date: 20140127
  Serious: Yes (Hospitalization, Other)
  Sender: FDA-Public Use
  Company Number: US-ABBOTT-11P-163-0702743-00

PATIENT
  Age: 77 Year
  Sex: Female

DRUGS (8)
  1. HUMIRA 40 MG/0.8 ML PEN [Suspect]
     Indication: RHEUMATOID ARTHRITIS
     Dates: start: 201101, end: 201108
  2. HUMIRA 40 MG/0.8 ML PEN [Suspect]
     Indication: PSORIASIS
  3. HUMIRA 40 MG/0.8 ML PEN [Suspect]
     Indication: OSTEOARTHRITIS
  4. FORTEO [Concomitant]
     Indication: PRODUCT USED FOR UNKNOWN INDICATION
  5. RECLAST [Concomitant]
     Indication: BONE LOSS
  6. DIOVAN [Concomitant]
     Indication: HYPERTENSION
     Dosage: 160/25MG DAILY
  7. LEXAPRO [Concomitant]
     Indication: DEPRESSION
     Dosage: 20MG DAILY
  8. SIMVASTATIN [Concomitant]
     Indication: BLOOD CHOLESTEROL INCREASED
     Dosage: 20MG DAILY

REACTIONS (6)
  - Arthralgia [Unknown]
  - Arthralgia [Not Recovered/Not Resolved]
  - Injection site pain [Not Recovered/Not Resolved]
  - Injection site pain [Unknown]
  - Device malfunction [Unknown]
  - Incorrect dose administered [Unknown]
